FAERS Safety Report 24537824 (Version 1)
Quarter: 2024Q4

REPORT INFORMATION
  Report Type: Other
  Country: US (occurrence: US)
  Receive Date: 20241023
  Receipt Date: 20241023
  Transmission Date: 20250115
  Serious: Yes (Hospitalization, Other)
  Sender: BIONPHARMA INC.
  Company Number: US-Bion-014139

PATIENT
  Age: 75 Year
  Sex: Male

DRUGS (1)
  1. DEXAMETHASONE [Suspect]
     Active Substance: DEXAMETHASONE
     Indication: Eye inflammation
     Dosage: IMPLANT INJECTION

REACTIONS (4)
  - Endophthalmitis [Recovering/Resolving]
  - Chorioretinitis [Recovering/Resolving]
  - Endocarditis histoplasma [Recovering/Resolving]
  - Necrotising retinitis [Recovering/Resolving]
